FAERS Safety Report 7844110-5 (Version None)
Quarter: 2011Q4

REPORT INFORMATION
  Report Type: 
  Country: None (occurrence: None)
  Receive Date: 20111025
  Receipt Date: 20111017
  Transmission Date: 20120403
  Serious: Yes (Hospitalization)
  Sender: FDA-Public Use
  Company Number: US-GILEAD-2011-0045265

PATIENT

DRUGS (4)
  1. LETAIRIS [Suspect]
     Dosage: 10 MG, UNK
     Route: 048
     Dates: start: 20110823
  2. LETAIRIS [Suspect]
     Indication: PULMONARY HYPERTENSION
     Dosage: 5 UNK, UNK
     Route: 048
  3. METOPROLOL TARTRATE [Concomitant]
  4. LISINOPRIL [Concomitant]

REACTIONS (3)
  - HEAD INJURY [None]
  - SYNCOPE [None]
  - DYSPNOEA [None]
